FAERS Safety Report 19483003 (Version 1)
Quarter: 2021Q3

REPORT INFORMATION
  Report Type: Spontaneous
  Country: US (occurrence: US)
  Receive Date: 20210701
  Receipt Date: 20210701
  Transmission Date: 20211014
  Serious: Yes (Other)
  Sender: FDA-Public Use
  Company Number: US-MYLANLABS-2021M1038522

PATIENT
  Age: 51 Year
  Sex: Male

DRUGS (13)
  1. GABAPENTIN. [Suspect]
     Active Substance: GABAPENTIN
     Indication: CANCER PAIN
     Dosage: 800 MILLIGRAM, TID
     Route: 065
  2. MORPHINE [Suspect]
     Active Substance: MORPHINE
     Dosage: 1.726 MILLIGRAM, QD INTRATHECAL PUMP (INFUSION)
     Route: 037
     Dates: start: 20180417
  3. MORPHINE [Suspect]
     Active Substance: MORPHINE
     Dosage: 2.42 MILLIGRAM, QD INTRATHECAL PUMP (INFUSION)
     Route: 037
     Dates: start: 20181009
  4. MORPHINE [Suspect]
     Active Substance: MORPHINE
     Indication: CANCER PAIN
     Dosage: 1.2 MILLIGRAM, QD INTRATHECAL PUMP (INFUSION)
     Route: 037
     Dates: start: 20171229
  5. MORPHINE [Suspect]
     Active Substance: MORPHINE
     Dosage: 2.2 MILLIGRAM, QD INTRATHECAL PUMP (INFUSION)
     Route: 037
     Dates: start: 20180925
  6. MORPHINE [Suspect]
     Active Substance: MORPHINE
     Dosage: 50 MICROGRAM, QH INTRATHECAL INFUSION
     Route: 037
  7. MORPHINE [Suspect]
     Active Substance: MORPHINE
     Dosage: 1.89 MILLIGRAM, QD INTRATHECAL PUMP (INFUSION)
     Route: 037
     Dates: start: 20180613
  8. MORPHINE [Suspect]
     Active Substance: MORPHINE
     Dosage: 2 MILLIGRAM, QD INTRATHECAL PUMP (INFUSION)
     Route: 037
     Dates: start: 20180726
  9. METHADONE [Suspect]
     Active Substance: METHADONE HYDROCHLORIDE
     Indication: CANCER PAIN
     Dosage: 40 MILLIGRAM, QD
     Route: 065
  10. MORPHINE [Suspect]
     Active Substance: MORPHINE
     Indication: CANCER PAIN
     Dosage: 40 MICROGRAM, QH INTRATHECAL INFUSION
     Route: 037
  11. MORPHINE [Suspect]
     Active Substance: MORPHINE
     Dosage: 1.439 MILLIGRAM, QD INTRATHECAL PUMP (INFUSION)
     Route: 037
     Dates: start: 20180206
  12. DULOXETINE. [Suspect]
     Active Substance: DULOXETINE
     Indication: CANCER PAIN
     Dosage: 60 MILLIGRAM, QD
     Route: 065
  13. OXYCODONE [Suspect]
     Active Substance: OXYCODONE
     Indication: CANCER PAIN
     Dosage: 30 MILLIGRAM, Q3H
     Route: 065

REACTIONS (3)
  - Off label use [Unknown]
  - Arachnoiditis [Recovering/Resolving]
  - Drug ineffective [Unknown]
